FAERS Safety Report 24291998 (Version 1)
Quarter: 2024Q3

REPORT INFORMATION
  Report Type: Spontaneous
  Country: US (occurrence: US)
  Receive Date: 20240906
  Receipt Date: 20240906
  Transmission Date: 20241017
  Serious: Yes (Other)
  Sender: JOHNSON AND JOHNSON
  Company Number: US-JNJFOC-20240911997

PATIENT
  Sex: Male
  Weight: 70 kg

DRUGS (7)
  1. DARZALEX [Suspect]
     Active Substance: DARATUMUMAB
     Indication: Plasma cell myeloma
     Dosage: LINE 2
     Route: 065
     Dates: start: 20221012, end: 20221221
  2. DARZALEX [Suspect]
     Active Substance: DARATUMUMAB
     Dosage: LINE 3
     Route: 065
     Dates: start: 20230125, end: 20230208
  3. CARFILZOMIB [Suspect]
     Active Substance: CARFILZOMIB
     Indication: Plasma cell myeloma
     Dosage: LINE 2
     Route: 065
     Dates: start: 20221012, end: 20221221
  4. CARFILZOMIB [Suspect]
     Active Substance: CARFILZOMIB
     Dosage: LINE 3
     Route: 065
     Dates: start: 20230125, end: 20230208
  5. POMALYST [Suspect]
     Active Substance: POMALIDOMIDE
     Indication: Plasma cell myeloma
     Dosage: LINE 3
     Route: 065
     Dates: start: 20230125, end: 20230208
  6. DEXAMETHASONE [Suspect]
     Active Substance: DEXAMETHASONE
     Indication: Plasma cell myeloma
     Dosage: LINE 2
     Route: 065
     Dates: start: 20221012, end: 20221221
  7. DEXAMETHASONE [Suspect]
     Active Substance: DEXAMETHASONE
     Dosage: LINE 3
     Route: 065
     Dates: start: 20230125, end: 20230208

REACTIONS (2)
  - Plasma cell myeloma [Unknown]
  - Intentional product use issue [Unknown]
